FAERS Safety Report 24423842 (Version 1)
Quarter: 2024Q4

REPORT INFORMATION
  Report Type: Spontaneous
  Country: US (occurrence: None)
  Receive Date: 20241009
  Receipt Date: 20241009
  Transmission Date: 20250115
  Serious: Yes (Life-Threatening, Other)
  Sender: Public
  Company Number: None

PATIENT
  Age: 45 Year
  Sex: Female
  Weight: 91.35 kg

DRUGS (2)
  1. MOUNJARO [Suspect]
     Active Substance: TIRZEPATIDE
     Indication: Weight decreased
     Dates: start: 20241004
  2. Trisemic Acid [Concomitant]

REACTIONS (3)
  - Cholecystitis [None]
  - Gastrointestinal inflammation [None]
  - Swelling [None]

NARRATIVE: CASE EVENT DATE: 20241007
